FAERS Safety Report 21129959 (Version 1)
Quarter: 2022Q3

REPORT INFORMATION
  Report Type: Spontaneous
  Country: ES (occurrence: ES)
  Receive Date: 20220726
  Receipt Date: 20220726
  Transmission Date: 20221026
  Serious: Yes (Other)
  Sender: FDA-Public Use
  Company Number: None

PATIENT
  Age: 19 Day
  Sex: Female

DRUGS (1)
  1. DEXAMETHASONE [Suspect]
     Active Substance: DEXAMETHASONE
     Indication: Neonatal respiratory failure
     Route: 042
     Dates: start: 20220404, end: 20220412

REACTIONS (1)
  - Left ventricular hypertrophy [Recovered/Resolved]

NARRATIVE: CASE EVENT DATE: 20220407
